FAERS Safety Report 11058260 (Version 1)
Quarter: 2015Q2

REPORT INFORMATION
  Report Type: Spontaneous
  Country: US (occurrence: None)
  Receive Date: 20150422
  Receipt Date: 20150422
  Transmission Date: 20150821
  Serious: Yes (Hospitalization)
  Sender: FDA-Public Use
  Company Number: None

PATIENT
  Sex: Male
  Weight: 73.8 kg

DRUGS (21)
  1. DUCLOLAX [Concomitant]
  2. VITAMIN C [Concomitant]
     Active Substance: ASCORBIC ACID
  3. SENNA [Concomitant]
     Active Substance: SENNA LEAF\SENNOSIDES\SENNOSIDES A AND B
  4. PROGRAF [Concomitant]
     Active Substance: TACROLIMUS\TACROLIMUS ANHYDROUS
  5. MAG-OX [Concomitant]
     Active Substance: MAGNESIUM OXIDE
  6. ALBUTEROL. [Concomitant]
     Active Substance: ALBUTEROL
  7. NORVASC [Concomitant]
     Active Substance: AMLODIPINE BESYLATE
  8. NEUPOGAN [Concomitant]
  9. LACTULOSE. [Concomitant]
     Active Substance: LACTULOSE
  10. TUMS [Concomitant]
     Active Substance: CALCIUM CARBONATE
  11. OMEPRAZOLE. [Concomitant]
     Active Substance: OMEPRAZOLE
  12. SOFOSBUVIR [Suspect]
     Active Substance: SOFOSBUVIR
     Indication: HEPATITIS C
     Route: 048
     Dates: start: 20140626, end: 20141210
  13. COLOACE [Concomitant]
  14. NEIROTIN [Concomitant]
  15. HYDROCODONE [Concomitant]
     Active Substance: HYDROCODONE
  16. RIBAVIRIN. [Suspect]
     Active Substance: RIBAVIRIN
     Indication: HEPATITIS C
     Route: 048
     Dates: start: 20140626, end: 20141210
  17. FOSAMAX [Concomitant]
     Active Substance: ALENDRONATE SODIUM
  18. ADVAIR DISKUS [Concomitant]
     Active Substance: FLUTICASONE PROPIONATE\SALMETEROL XINAFOATE
  19. RIBAVIRIN. [Suspect]
     Active Substance: RIBAVIRIN
     Route: 048
     Dates: start: 20140626, end: 20141210
  20. ATROVENT [Concomitant]
     Active Substance: IPRATROPIUM BROMIDE
  21. FISH OIL [Concomitant]
     Active Substance: FISH OIL

REACTIONS (2)
  - Sepsis [None]
  - Cholangitis [None]

NARRATIVE: CASE EVENT DATE: 20141207
